FAERS Safety Report 5248641-6 (Version None)
Quarter: 2007Q1

REPORT INFORMATION
  Report Type: 
  Country: None (occurrence: None)
  Receive Date: 20070228
  Receipt Date: 20070221
  Transmission Date: 20070707
  Serious: Yes (Hospitalization)
  Sender: FDA-Public Use
  Company Number: FR-SP-2007-00494

PATIENT
  Age: 69 Year
  Sex: Male
  Weight: 74 kg

DRUGS (1)
  1. IMMUCYST [Suspect]
     Indication: BLADDER CANCER
     Dosage: WEEKLY
     Route: 043
     Dates: start: 20060301, end: 20060601

REACTIONS (8)
  - ASTHENIA [None]
  - BOVINE TUBERCULOSIS [None]
  - GENERAL PHYSICAL HEALTH DETERIORATION [None]
  - GRANULOMA [None]
  - HEPATIC FUNCTION ABNORMAL [None]
  - HYPERHIDROSIS [None]
  - PANCYTOPENIA [None]
  - PYREXIA [None]
